FAERS Safety Report 17881859 (Version 2)
Quarter: 2020Q3

REPORT INFORMATION
  Report Type: Spontaneous
  Country: US (occurrence: US)
  Receive Date: 20200610
  Receipt Date: 20200813
  Transmission Date: 20201103
  Serious: No
  Sender: FDA-Public Use
  Company Number: US-JNJFOC-20200612279

PATIENT
  Age: 50 Year
  Sex: Female

DRUGS (2)
  1. STELARA [Suspect]
     Active Substance: USTEKINUMAB
     Indication: CROHN^S DISEASE
     Route: 058
     Dates: start: 202004, end: 202006
  2. STELARA [Suspect]
     Active Substance: USTEKINUMAB

REACTIONS (10)
  - Nightmare [Unknown]
  - Lymphadenopathy [Not Recovered/Not Resolved]
  - Sinusitis [Not Recovered/Not Resolved]
  - Hyperhidrosis [Not Recovered/Not Resolved]
  - Eye discharge [Not Recovered/Not Resolved]
  - Urticaria [Unknown]
  - Memory impairment [Not Recovered/Not Resolved]
  - Balance disorder [Unknown]
  - Headache [Unknown]
  - Cold sweat [Not Recovered/Not Resolved]

NARRATIVE: CASE EVENT DATE: 2020
